FAERS Safety Report 4617123-4 (Version None)
Quarter: 2005Q1

REPORT INFORMATION
  Report Type: 
  Country: None (occurrence: None)
  Receive Date: 20050323
  Receipt Date: 20050317
  Transmission Date: 20050727
  Serious: Yes (Other)
  Sender: FDA-Public Use
  Company Number: DE-ROCHE-399059

PATIENT
  Age: 71 Year
  Sex: Female
  Weight: 86 kg

DRUGS (4)
  1. IBANDRONIC ACID [Suspect]
     Route: 042
     Dates: start: 20040618
  2. ARIMIDEX [Concomitant]
     Indication: DRUG THERAPY
  3. PAMIDRONATE DISODIUM [Concomitant]
     Dates: start: 20030404, end: 20040511
  4. ZOLEDRONATE [Concomitant]
     Dates: start: 20030404, end: 20040511

REACTIONS (5)
  - ABDOMINAL PAIN [None]
  - DIARRHOEA [None]
  - FATIGUE [None]
  - NAUSEA [None]
  - TACHYCARDIA [None]
